FAERS Safety Report 24680769 (Version 2)
Quarter: 2024Q4

REPORT INFORMATION
  Report Type: Spontaneous
  Country: RS (occurrence: RS)
  Receive Date: 20241129
  Receipt Date: 20241206
  Transmission Date: 20250114
  Serious: Yes (Death, Other)
  Sender: ALEXION PHARMACEUTICALS
  Company Number: RS-ASTRAZENECA-202410BKN025121RS

PATIENT

DRUGS (4)
  1. SOLIRIS [Suspect]
     Active Substance: ECULIZUMAB
     Indication: Atypical haemolytic uraemic syndrome
     Dosage: 900 MILLIGRAM
  2. SOLIRIS [Suspect]
     Active Substance: ECULIZUMAB
     Dosage: 900 MILLIGRAM
  3. SOLIRIS [Suspect]
     Active Substance: ECULIZUMAB
     Dosage: 900 MILLIGRAM
  4. SOLIRIS [Suspect]
     Active Substance: ECULIZUMAB
     Dosage: 900 MILLIGRAM

REACTIONS (9)
  - Respiratory arrest [Fatal]
  - Multiple organ dysfunction syndrome [Fatal]
  - Coma [Unknown]
  - Anuria [Unknown]
  - Pulmonary haemorrhage [Unknown]
  - Pneumonia [Unknown]
  - Cerebrovascular accident [Unknown]
  - Hypertension [Unknown]
  - Off label use [Unknown]
